FAERS Safety Report 16219350 (Version 3)
Quarter: 2020Q3

REPORT INFORMATION
  Report Type: Spontaneous
  Country: CH (occurrence: CH)
  Receive Date: 20190419
  Receipt Date: 20200703
  Transmission Date: 20201102
  Serious: Yes (Hospitalization)
  Sender: FDA-Public Use
  Company Number: CH-BAXTER-2019BAX007584

PATIENT
  Age: 48 Year
  Sex: Female

DRUGS (50)
  1. BACTRIM [Suspect]
     Active Substance: SULFAMETHOXAZOLE\TRIMETHOPRIM
     Route: 065
     Dates: end: 20190327
  2. VANCOMYCIN [Suspect]
     Active Substance: VANCOMYCIN
     Route: 065
     Dates: start: 20190405
  3. ACYCLOVIR. [Suspect]
     Active Substance: ACYCLOVIR
     Dosage: DOSE RE?INTRODUCED
     Route: 065
  4. DOXYLAMINE, FOLIC ACID, PYRIDOXINE [Suspect]
     Active Substance: DOXYLAMINE\FOLIC ACID\PYRIDOXINE
     Indication: PRODUCT USED FOR UNKNOWN INDICATION
     Route: 065
     Dates: start: 20190317, end: 20190326
  5. URSOFALK [Suspect]
     Active Substance: URSODIOL
     Route: 065
     Dates: start: 20190401
  6. FLUDARABINE [Suspect]
     Active Substance: FLUDARABINE PHOSPHATE
     Dosage: DOSE RE?INTRODUCED
     Route: 065
  7. BACTRIM [Suspect]
     Active Substance: SULFAMETHOXAZOLE\TRIMETHOPRIM
     Indication: PRODUCT USED FOR UNKNOWN INDICATION
     Route: 065
     Dates: start: 20190320, end: 20190320
  8. NEXIUM [Suspect]
     Active Substance: ESOMEPRAZOLE MAGNESIUM
     Indication: PRODUCT USED FOR UNKNOWN INDICATION
     Route: 042
     Dates: start: 20190319, end: 20190326
  9. ACYCLOVIR. [Suspect]
     Active Substance: ACYCLOVIR
     Indication: PRODUCT USED FOR UNKNOWN INDICATION
     Route: 065
     Dates: start: 20190319, end: 20190326
  10. ONDANSETRON [Suspect]
     Active Substance: ONDANSETRON
     Route: 042
     Dates: start: 20190328
  11. URSOFALK [Suspect]
     Active Substance: URSODIOL
     Indication: PRODUCT USED FOR UNKNOWN INDICATION
     Route: 065
     Dates: start: 20190306, end: 20190326
  12. ENDOXAN 1 G. TROCKENSUBSTANZ ZUR INTRAVENOSEN INFUSION [Suspect]
     Active Substance: CYCLOPHOSPHAMIDE
     Indication: PROPHYLAXIS AGAINST GRAFT VERSUS HOST DISEASE
     Route: 065
     Dates: start: 20190321, end: 20190323
  13. ENDOXAN 1 G. TROCKENSUBSTANZ ZUR INTRAVENOSEN INFUSION [Suspect]
     Active Substance: CYCLOPHOSPHAMIDE
     Dosage: DOSE RE?INTRODUCED
     Route: 065
  14. MYCOSTATINE [Suspect]
     Active Substance: NYSTATIN
     Dosage: DOSE RE?INTRODUCED
     Route: 065
  15. CALCIUM GLUCONATE. [Suspect]
     Active Substance: CALCIUM GLUCONATE
     Indication: PRODUCT USED FOR UNKNOWN INDICATION
     Route: 042
     Dates: start: 20190322, end: 20190326
  16. CALCIUM GLUCONATE. [Suspect]
     Active Substance: CALCIUM GLUCONATE
     Dosage: DOSE RE?INTRODUCED
     Route: 065
  17. PERFALGAN [Suspect]
     Active Substance: ACETAMINOPHEN
     Route: 042
     Dates: start: 20190318, end: 20190318
  18. UROMITEXAN 400 ML, LOSUNG ZUR INTRAVENOSEN ANWENDUNG [Suspect]
     Active Substance: MESNA
     Indication: PROPHYLAXIS
     Route: 065
     Dates: start: 20190321, end: 20190323
  19. METOCLOPRAMIDE. [Suspect]
     Active Substance: METOCLOPRAMIDE
     Indication: PRODUCT USED FOR UNKNOWN INDICATION
     Route: 065
     Dates: start: 20190314, end: 20190326
  20. TACROLIMUS. [Suspect]
     Active Substance: TACROLIMUS
     Indication: PROPHYLAXIS AGAINST GRAFT VERSUS HOST DISEASE
     Dosage: CONTINUOUS INFUSION, DOSE: 0.03 MG/KG
     Route: 041
     Dates: start: 20190323
  21. TORASEMIDE [Suspect]
     Active Substance: TORSEMIDE
     Dosage: DOSE INCREASED UP TO 20 MG
     Route: 065
     Dates: end: 20190326
  22. PERFALGAN [Suspect]
     Active Substance: ACETAMINOPHEN
     Route: 042
     Dates: start: 20190406
  23. TREOSULFAN [Suspect]
     Active Substance: TREOSULFAN
     Indication: PRODUCT USED FOR UNKNOWN INDICATION
     Route: 065
     Dates: start: 20190313, end: 20190315
  24. TREOSULFAN [Suspect]
     Active Substance: TREOSULFAN
     Dosage: DOSE RE?INTRODUCED
     Route: 065
  25. BACTRIM [Suspect]
     Active Substance: SULFAMETHOXAZOLE\TRIMETHOPRIM
     Route: 065
     Dates: start: 20190322, end: 20190322
  26. METOCLOPRAMIDE. [Suspect]
     Active Substance: METOCLOPRAMIDE
     Route: 065
     Dates: start: 20190401
  27. ONDANSETRON [Suspect]
     Active Substance: ONDANSETRON
     Indication: PRODUCT USED FOR UNKNOWN INDICATION
     Route: 042
     Dates: start: 20190313, end: 20190326
  28. NEXIUM [Suspect]
     Active Substance: ESOMEPRAZOLE MAGNESIUM
     Route: 042
     Dates: start: 20190328
  29. MYCOSTATINE [Suspect]
     Active Substance: NYSTATIN
     Indication: PRODUCT USED FOR UNKNOWN INDICATION
     Route: 065
     Dates: start: 20190306, end: 20190326
  30. DOXYLAMINE, FOLIC ACID, PYRIDOXINE [Suspect]
     Active Substance: DOXYLAMINE\FOLIC ACID\PYRIDOXINE
     Dosage: DOSE RE?INTRODUCED
     Route: 065
  31. MORPHINE [Suspect]
     Active Substance: MORPHINE
     Indication: PRODUCT USED FOR UNKNOWN INDICATION
     Route: 041
     Dates: start: 20190325, end: 20190326
  32. TORASEMIDE [Suspect]
     Active Substance: TORSEMIDE
     Indication: PRODUCT USED FOR UNKNOWN INDICATION
     Route: 065
     Dates: start: 20190307
  33. PREGABALINE [Suspect]
     Active Substance: PREGABALIN
     Indication: PRODUCT USED FOR UNKNOWN INDICATION
     Route: 065
     Dates: start: 20190326, end: 20190326
  34. MEPHAMESONE [Suspect]
     Active Substance: DEXAMETHASONE
     Dosage: DOSE RE?INTRODUCED
     Route: 065
  35. PERFALGAN [Suspect]
     Active Substance: ACETAMINOPHEN
     Indication: PRODUCT USED FOR UNKNOWN INDICATION
     Route: 042
     Dates: start: 20190307, end: 20190307
  36. UROMITEXAN 400 ML, LOSUNG ZUR INTRAVENOSEN ANWENDUNG [Suspect]
     Active Substance: MESNA
     Dosage: DOSE RE?INTRODUCED
     Route: 065
  37. FLUDARABINE [Suspect]
     Active Substance: FLUDARABINE PHOSPHATE
     Indication: PRODUCT USED FOR UNKNOWN INDICATION
     Route: 065
     Dates: start: 20190313, end: 20190316
  38. BACTRIM [Suspect]
     Active Substance: SULFAMETHOXAZOLE\TRIMETHOPRIM
     Route: 065
     Dates: start: 20190404
  39. MYCOPHENOLATE MOFETIL. [Suspect]
     Active Substance: MYCOPHENOLATE MOFETIL
     Indication: PROPHYLAXIS AGAINST GRAFT VERSUS HOST DISEASE
     Dosage: DOSE: 15 MG/KG
     Route: 065
     Dates: start: 20190323
  40. NEUPOGEN [Suspect]
     Active Substance: FILGRASTIM
     Indication: PROPHYLAXIS AGAINST GRAFT VERSUS HOST DISEASE
     Dosage: DOSE: 30 UI
     Route: 042
     Dates: start: 20190323
  41. TORASEMIDE [Suspect]
     Active Substance: TORSEMIDE
     Route: 065
     Dates: start: 20190327
  42. VANCOMYCIN [Suspect]
     Active Substance: VANCOMYCIN
     Indication: PRODUCT USED FOR UNKNOWN INDICATION
     Route: 065
     Dates: start: 20190323, end: 20190327
  43. MORPHINE [Suspect]
     Active Substance: MORPHINE
     Route: 041
     Dates: start: 20190406
  44. EMEND [Suspect]
     Active Substance: APREPITANT
     Indication: PRODUCT USED FOR UNKNOWN INDICATION
     Route: 065
     Dates: start: 20190314, end: 20190326
  45. EMEND [Suspect]
     Active Substance: APREPITANT
     Dosage: DOSE RE?INTRODUCED
     Route: 065
  46. FLUCONAZOLE. [Suspect]
     Active Substance: FLUCONAZOLE
     Indication: PRODUCT USED FOR UNKNOWN INDICATION
     Route: 065
     Dates: start: 20190326, end: 20190326
  47. FLUCONAZOLE. [Suspect]
     Active Substance: FLUCONAZOLE
     Route: 065
     Dates: start: 20190405
  48. PREGABALINE [Suspect]
     Active Substance: PREGABALIN
     Dosage: DOSE RE?INTRODUCED
     Route: 065
  49. MEPHAMESONE [Suspect]
     Active Substance: DEXAMETHASONE
     Indication: PRODUCT USED FOR UNKNOWN INDICATION
     Route: 042
     Dates: start: 20190321, end: 20190324
  50. PERFALGAN [Suspect]
     Active Substance: ACETAMINOPHEN
     Route: 042
     Dates: start: 20190325, end: 20190325

REACTIONS (3)
  - Toxic epidermal necrolysis [Recovered/Resolved]
  - Pruritus [Recovered/Resolved]
  - Burning sensation [Recovered/Resolved]

NARRATIVE: CASE EVENT DATE: 20190317
